FAERS Safety Report 7142062-7 (Version None)
Quarter: 2010Q4

REPORT INFORMATION
  Report Type: 
  Country: None (occurrence: None)
  Receive Date: 20101207
  Receipt Date: 20101130
  Transmission Date: 20110411
  Serious: Yes (Hospitalization)
  Sender: FDA-Public Use
  Company Number: B0687726A

PATIENT
  Sex: Female

DRUGS (3)
  1. AUGMENTIN [Suspect]
     Indication: TOOTHACHE
     Route: 065
     Dates: start: 20101108, end: 20101115
  2. SERETIDE [Concomitant]
  3. SPIRIVA [Concomitant]

REACTIONS (2)
  - DYSPNOEA [None]
  - URTICARIA [None]
